FAERS Safety Report 18518038 (Version 3)
Quarter: 2023Q4

REPORT INFORMATION
  Report Type: Report from Study
  Country: US (occurrence: US)
  Receive Date: 20201118
  Receipt Date: 20231220
  Transmission Date: 20240110
  Serious: No
  Sender: FDA-Public Use
  Company Number: US-KYOWAKIRIN-2020BKK018919

PATIENT

DRUGS (6)
  1. CRYSVITA [Suspect]
     Active Substance: BUROSUMAB-TWZA
     Indication: Hereditary hypophosphataemic rickets
     Dosage: 60 MG, 1X/4 WEEKS
     Route: 058
     Dates: start: 202006
  2. CRYSVITA [Suspect]
     Active Substance: BUROSUMAB-TWZA
     Dosage: 30 MG, 1X/2 WEEKS
     Route: 058
     Dates: start: 20200914
  3. CRYSVITA [Suspect]
     Active Substance: BUROSUMAB-TWZA
     Dosage: 30 MG (IN COMBINATION WITH 20 MG TO ACHIEVE A TOTAL DOSE OF 50 MG), EVERY 14 DAYS
     Route: 058
     Dates: start: 20210303
  4. CRYSVITA [Suspect]
     Active Substance: BUROSUMAB-TWZA
     Indication: Hereditary hypophosphataemic rickets
     Dosage: 20 MG, EVERY 14 DAYS
     Route: 058
     Dates: end: 2020
  5. CRYSVITA [Suspect]
     Active Substance: BUROSUMAB-TWZA
     Dosage: 20 MG (IN COMBINATION WITH 30 MG TO ACHIEVE A TOTAL DOSE OF 50 MG), EVERY 14 DAYS
     Route: 058
     Dates: start: 20210303
  6. CRYSVITA [Suspect]
     Active Substance: BUROSUMAB-TWZA
     Indication: Hereditary hypophosphataemic rickets
     Dosage: 10 MG, 1X/4 WEEKS
     Route: 058
     Dates: start: 202006

REACTIONS (3)
  - Abdominal pain upper [Not Recovered/Not Resolved]
  - Weight abnormal [Unknown]
  - Abdominal pain upper [Unknown]

NARRATIVE: CASE EVENT DATE: 20201001
